FAERS Safety Report 5610200-0 (Version None)
Quarter: 2008Q1

REPORT INFORMATION
  Report Type: 
  Country: None (occurrence: None)
  Receive Date: 20080131
  Receipt Date: 20080122
  Transmission Date: 20080703
  Serious: Yes (Other)
  Sender: FDA-Public Use
  Company Number: US-PFIZER INC-2008008658

PATIENT
  Sex: Female
  Weight: 55 kg

DRUGS (2)
  1. CHANTIX [Suspect]
     Indication: SMOKING CESSATION THERAPY
     Dates: start: 20070901, end: 20071201
  2. VALIUM [Concomitant]

REACTIONS (6)
  - ANXIETY [None]
  - BLOOD COUNT ABNORMAL [None]
  - DYSPNOEA [None]
  - MYOCARDIAL INFARCTION [None]
  - PANIC ATTACK [None]
  - SLEEP DISORDER [None]
